FAERS Safety Report 6427296-9 (Version None)
Quarter: 2009Q4

REPORT INFORMATION
  Report Type: 
  Country: None (occurrence: None)
  Receive Date: 20091104
  Receipt Date: 20091029
  Transmission Date: 20100525
  Serious: Yes (Other)
  Sender: FDA-Public Use
  Company Number: B0600907A

PATIENT
  Sex: Female

DRUGS (3)
  1. TYVERB [Suspect]
     Indication: BREAST CANCER
     Dates: start: 20081101
  2. XELODA [Suspect]
     Indication: BREAST CANCER
     Dates: start: 20081101
  3. POLYCHEMOTHERAPY [Suspect]
     Indication: BREAST CANCER
     Dates: start: 20030101

REACTIONS (2)
  - BONE DISORDER [None]
  - TOOTH DISORDER [None]
